FAERS Safety Report 15120725 (Version 1)
Quarter: 2018Q3

REPORT INFORMATION
  Report Type: Spontaneous
  Country: US (occurrence: US)
  Receive Date: 20180709
  Receipt Date: 20180709
  Transmission Date: 20181010
  Serious: No
  Sender: FDA-Public Use
  Company Number: US-SA-2018SA159145

PATIENT
  Age: 70 Year
  Sex: Female

DRUGS (1)
  1. MULTAQ [Suspect]
     Active Substance: DRONEDARONE
     Dosage: 400 MG, QD

REACTIONS (5)
  - Rash [Unknown]
  - Contusion [Unknown]
  - Pruritus [Unknown]
  - Urticaria [Unknown]
  - Scratch [Unknown]
